FAERS Safety Report 4417559-0 (Version None)
Quarter: 2004Q2

REPORT INFORMATION
  Report Type: 
  Country: None (occurrence: None)
  Receive Date: 20040625
  Receipt Date: 20040326
  Transmission Date: 20050107
  Serious: No
  Sender: FDA-Public Use
  Company Number: 205567

PATIENT
  Age: 50 Year
  Sex: Male

DRUGS (4)
  1. AVASTIN [Suspect]
     Indication: COLORECTAL CANCER METASTATIC
     Dosage: 350 MG, Q2W, INTRAVENOUS
     Route: 042
     Dates: start: 20040317
  2. FLUOROURACIL [Concomitant]
  3. LEUCOVORIN (LEUCOVORIN SODIUM) [Concomitant]
  4. OXALIPLATIN (OXALIPLATIN) [Concomitant]

REACTIONS (2)
  - LOCALISED INFECTION [None]
  - PAIN [None]
